FAERS Safety Report 12501212 (Version 2)
Quarter: 2016Q3

REPORT INFORMATION
  Report Type: Report from Study
  Country: US (occurrence: US)
  Receive Date: 20160627
  Receipt Date: 20160929
  Transmission Date: 20161109
  Serious: No
  Sender: FDA-Public Use
  Company Number: GXBR2016US001984

PATIENT
  Age: 62 Year
  Sex: Female

DRUGS (2)
  1. GLATOPA [Suspect]
     Active Substance: GLATIRAMER ACETATE
     Indication: MULTIPLE SCLEROSIS
     Dosage: 20 MG, QD
     Route: 065
     Dates: start: 20160524
  2. GLATOPA [Suspect]
     Active Substance: GLATIRAMER ACETATE
     Dosage: 20 MG, TAKE FOR 4 DAYS THEN SKIP A DAY
     Route: 065

REACTIONS (2)
  - Fatigue [Recovered/Resolved]
  - Underdose [Recovered/Resolved]

NARRATIVE: CASE EVENT DATE: 20160526
